FAERS Safety Report 5591321-8 (Version None)
Quarter: 2007Q4

REPORT INFORMATION
  Report Type: 
  Country: None (occurrence: None)
  Receive Date: 20071212
  Receipt Date: 20070830
  Transmission Date: 20080405
  Serious: Yes (Hospitalization, Other)
  Sender: FDA-Public Use
  Company Number: USA-2007-0028998

PATIENT
  Sex: Male

DRUGS (1)
  1. OXYCONTIN [Suspect]
     Indication: BACK PAIN
     Dosage: ORAL
     Route: 048
     Dates: start: 20040101

REACTIONS (11)
  - ANOREXIA [None]
  - DIARRHOEA [None]
  - DRUG ABUSE [None]
  - DRUG DEPENDENCE [None]
  - HYPERHIDROSIS [None]
  - INSOMNIA [None]
  - LIBIDO DECREASED [None]
  - MALAISE [None]
  - SOMNOLENCE [None]
  - TREMOR [None]
  - WITHDRAWAL SYNDROME [None]
